FAERS Safety Report 9019489 (Version 4)
Quarter: 2013Q4

REPORT INFORMATION
  Report Type: Spontaneous
  Country: SE (occurrence: SE)
  Receive Date: 20130118
  Receipt Date: 20131011
  Transmission Date: 20140711
  Serious: Yes (Hospitalization, Other)
  Sender: FDA-Public Use
  Company Number: PHHY2013SE004493

PATIENT
  Age: 21 Year
  Sex: Male

DRUGS (5)
  1. TEGRETOL [Suspect]
     Indication: EPILEPSY
     Dosage: UNK UKN, UNK
     Dates: start: 201210
  2. TAZOCIN [Suspect]
     Dosage: UNK UKN, UNK
     Dates: start: 2012
  3. MERONEM [Suspect]
     Indication: PYREXIA
     Dosage: UNK UKN, UNK
     Dates: start: 201210, end: 201210
  4. MERONEM [Suspect]
     Dosage: UNK
     Dates: start: 20121212
  5. LEVETIRACETAM BLUEFISH [Suspect]
     Indication: EPILEPSY
     Dosage: 500 MG PER DAY
     Route: 048

REACTIONS (7)
  - Neutropenia [Unknown]
  - Pyrexia [Unknown]
  - Rash [Unknown]
  - C-reactive protein increased [Unknown]
  - Anaemia [Recovering/Resolving]
  - Leukopenia [Recovering/Resolving]
  - Urticaria [Unknown]
